FAERS Safety Report 24418994 (Version 1)
Quarter: 2024Q4

REPORT INFORMATION
  Report Type: Spontaneous
  Country: JP (occurrence: JP)
  Receive Date: 20241009
  Receipt Date: 20241009
  Transmission Date: 20250115
  Serious: Yes (Other)
  Sender: PFIZER
  Company Number: JP-PFIZER INC-202400271852

PATIENT

DRUGS (1)
  1. VFEND [Suspect]
     Active Substance: VORICONAZOLE
     Dosage: 200, 2X/DAY
     Route: 048

REACTIONS (3)
  - Drug level increased [Unknown]
  - Dysarthria [Unknown]
  - Feeling abnormal [Unknown]
